FAERS Safety Report 7608458-1 (Version None)
Quarter: 2011Q3

REPORT INFORMATION
  Report Type: 
  Country: None (occurrence: None)
  Receive Date: 20110713
  Receipt Date: 20110713
  Transmission Date: 20111222
  Serious: Yes (Hospitalization)
  Sender: FDA-Public Use
  Company Number: None

PATIENT
  Age: 13 Year
  Sex: Female
  Weight: 54.3 kg

DRUGS (3)
  1. VITAMIN D [Concomitant]
  2. DOXYCYCLINE [Suspect]
     Indication: LYME DISEASE
     Dosage: PO
     Route: 048
     Dates: start: 20110501, end: 20110627
  3. CLARITIN [Concomitant]

REACTIONS (5)
  - AURA [None]
  - RASH [None]
  - PSEUDOMONAS INFECTION [None]
  - BRUXISM [None]
  - SUPERINFECTION [None]
